FAERS Safety Report 15617680 (Version 1)
Quarter: 2018Q4

REPORT INFORMATION
  Report Type: Report from Study
  Country: US (occurrence: US)
  Receive Date: 20181114
  Receipt Date: 20181114
  Transmission Date: 20190205
  Serious: Yes (Other)
  Sender: FDA-Public Use
  Company Number: US-MYLANLABS-2018M1084201

PATIENT
  Age: 85 Year
  Sex: Female

DRUGS (2)
  1. PIMAVANSERIN [Suspect]
     Active Substance: PIMAVANSERIN
     Indication: PARKINSON^S DISEASE PSYCHOSIS
     Route: 065
  2. QUETIAPINE. [Suspect]
     Active Substance: QUETIAPINE
     Indication: PARKINSON^S DISEASE PSYCHOSIS
     Dosage: 25 MG, QD
     Route: 065

REACTIONS (1)
  - Drug ineffective [Unknown]
